FAERS Safety Report 15395504 (Version 1)
Quarter: 2018Q3

REPORT INFORMATION
  Report Type: Spontaneous
  Country: US (occurrence: US)
  Receive Date: 20180912
  Receipt Date: 20180912
  Transmission Date: 20181010
  Serious: Yes (Hospitalization)
  Sender: FDA-Public Use
  Company Number: None

PATIENT
  Age: 49 Year
  Sex: Female

DRUGS (15)
  1. CELEBREX [Concomitant]
     Active Substance: CELECOXIB
  2. FLORJEN [Concomitant]
  3. ADVAIR HFA [Concomitant]
     Active Substance: FLUTICASONE PROPIONATE\SALMETEROL XINAFOATE
  4. MEPHYTON [Concomitant]
     Active Substance: PHYTONADIONE
  5. OMEPRAZOLE. [Concomitant]
     Active Substance: OMEPRAZOLE
  6. PHYTONADIONE. [Concomitant]
     Active Substance: PHYTONADIONE
  7. PULMOZYME [Suspect]
     Active Substance: DORNASE ALFA
     Indication: CYSTIC FIBROSIS
     Route: 055
     Dates: start: 20180402
  8. LEVALBUTEROL. [Concomitant]
     Active Substance: LEVALBUTEROL
  9. C [Concomitant]
  10. XOPENEX [Concomitant]
     Active Substance: LEVALBUTEROL HYDROCHLORIDE
  11. AZELASTINE. [Concomitant]
     Active Substance: AZELASTINE HYDROCHLORIDE
  12. BOOST HI PRO [Concomitant]
  13. CIPRO [Concomitant]
     Active Substance: CIPROFLOXACIN HYDROCHLORIDE
  14. FLUTICASONE. [Concomitant]
     Active Substance: FLUTICASONE
  15. TOBRAMYCIN. [Concomitant]
     Active Substance: TOBRAMYCIN

REACTIONS (2)
  - Drug dose omission [None]
  - Cystic fibrosis [None]

NARRATIVE: CASE EVENT DATE: 20180813
